FAERS Safety Report 11805259 (Version 1)
Quarter: 2015Q4

REPORT INFORMATION
  Report Type: Other
  Country: GB (occurrence: GB)
  Receive Date: 20151206
  Receipt Date: 20151206
  Transmission Date: 20160305
  Serious: Yes (Disabling, Other)
  Sender: FDA-Public Use
  Company Number: GB-MYLANLABS-2015M1041655

PATIENT

DRUGS (1)
  1. CITALOPRAM [Suspect]
     Active Substance: CITALOPRAM HYDROBROMIDE
     Indication: ANXIETY DISORDER
     Dosage: 20 MG, UNK
     Route: 048
     Dates: start: 20151019, end: 20151111

REACTIONS (10)
  - Visual impairment [Not Recovered/Not Resolved]
  - Trismus [Recovering/Resolving]
  - Dissociation [Not Recovered/Not Resolved]
  - Tachyphrenia [Not Recovered/Not Resolved]
  - Anxiety [Unknown]
  - Panic attack [Not Recovered/Not Resolved]
  - Nausea [Recovering/Resolving]
  - Negative thoughts [Unknown]
  - Dizziness [Not Recovered/Not Resolved]
  - Morbid thoughts [Unknown]

NARRATIVE: CASE EVENT DATE: 20151019
